FAERS Safety Report 7346234-8 (Version None)
Quarter: 2011Q1

REPORT INFORMATION
  Report Type: 
  Country: None (occurrence: None)
  Receive Date: 20110311
  Receipt Date: 20110304
  Transmission Date: 20110831
  Serious: No
  Sender: FDA-Public Use
  Company Number: US-PFIZER INC-2011031515

PATIENT
  Age: 53 Year
  Sex: Female
  Weight: 53.515 kg

DRUGS (5)
  1. ADVIL PM [Suspect]
     Indication: BACK PAIN
  2. MULTIVITAMIN [Concomitant]
     Dosage: UNK
  3. DIURETICS [Concomitant]
     Dosage: UNK
  4. ADVIL PM [Suspect]
     Indication: NECK PAIN
     Dosage: UNK 1-2 BEFORE BEDTIME
     Route: 048
     Dates: start: 20110201, end: 20110201
  5. ADVIL PM [Suspect]
     Indication: INSOMNIA

REACTIONS (1)
  - DRUG INEFFECTIVE [None]
